FAERS Safety Report 5910877-6 (Version None)
Quarter: 2008Q4

REPORT INFORMATION
  Report Type: 
  Country: None (occurrence: None)
  Receive Date: 20081007
  Receipt Date: 20080612
  Transmission Date: 20090506
  Serious: No
  Sender: FDA-Public Use
  Company Number: US-ASTRAZENECA-2008UW11758

PATIENT
  Age: 56 Year
  Sex: Female
  Weight: 77.1 kg

DRUGS (4)
  1. ARIMIDEX [Suspect]
     Indication: BREAST CANCER
     Route: 048
     Dates: start: 20080501
  2. ENALAPRIL MALEATE [Concomitant]
  3. CLONAZEPAM [Concomitant]
     Indication: HOT FLUSH
  4. CLONAZEPAM [Concomitant]
     Indication: SLEEP DISORDER

REACTIONS (4)
  - ARTHRALGIA [None]
  - DEPRESSION [None]
  - HOT FLUSH [None]
  - LOSS OF LIBIDO [None]
